FAERS Safety Report 20708775 (Version 4)
Quarter: 2022Q3

REPORT INFORMATION
  Report Type: Spontaneous
  Country: US (occurrence: US)
  Receive Date: 20220414
  Receipt Date: 20220728
  Transmission Date: 20221026
  Serious: Yes (Death, Other)
  Sender: FDA-Public Use
  Company Number: US-VELOXIS PHARMACEUTICALS-2022VELUS-000240

PATIENT

DRUGS (11)
  1. ENVARSUS XR [Suspect]
     Active Substance: TACROLIMUS
     Indication: Prophylaxis against transplant rejection
     Dosage: UNK (STRENGTH 1 MG)
  2. ENVARSUS XR [Suspect]
     Active Substance: TACROLIMUS
     Dosage: UNK (STRENGTH 4 MG)
  3. ENVARSUS XR [Suspect]
     Active Substance: TACROLIMUS
     Dosage: UNK (STRENGTH 1 MG)
  4. ENVARSUS XR [Suspect]
     Active Substance: TACROLIMUS
     Dosage: UNK (STRENGTH 4 MG)
  5. ENVARSUS XR [Suspect]
     Active Substance: TACROLIMUS
     Dosage: UNK (STRENGTH 4 MG)
  6. ENVARSUS XR [Suspect]
     Active Substance: TACROLIMUS
     Dosage: UNK (STRENGTH 1 MG)
  7. ENVARSUS XR [Suspect]
     Active Substance: TACROLIMUS
     Dosage: UNK (STRENGTH 4 MG)
  8. ENVARSUS XR [Suspect]
     Active Substance: TACROLIMUS
     Dosage: UNK (STRENGTH 4 MG)
  9. ENVARSUS XR [Suspect]
     Active Substance: TACROLIMUS
     Dosage: UNK (STRENGTH 4 MG)
  10. ENVARSUS XR [Suspect]
     Active Substance: TACROLIMUS
     Dosage: UNK (STRENGTH 4 MG)
  11. ENVARSUS XR [Suspect]
     Active Substance: TACROLIMUS
     Dosage: UNK (STRENGTH 4 MG)

REACTIONS (2)
  - Haemophagocytic lymphohistiocytosis [Fatal]
  - Off label use [Unknown]
